FAERS Safety Report 5423168-7 (Version None)
Quarter: 2007Q3

REPORT INFORMATION
  Report Type: 
  Country: None (occurrence: None)
  Receive Date: 20070821
  Receipt Date: 20070817
  Transmission Date: 20080115
  Serious: Yes (Death)
  Sender: FDA-Public Use
  Company Number: E2020-01538-SPO-GB

PATIENT
  Sex: Male

DRUGS (7)
  1. ARICEPT [Suspect]
     Indication: PARKINSON'S DISEASE
     Dosage: 5 MG, 1 IN 1 D, ORAL
     Route: 048
     Dates: start: 20070101
  2. ROGITINE PATCH (PHENTOLAMINE MESILATE) [Concomitant]
  3. SINEMET [Concomitant]
  4. ANTIDEPRESSANT (ANTIDEPRESSANTS) [Concomitant]
  5. ANTIBIOTIC (ANTIINFECTIVES) [Concomitant]
  6. FLUDROCORTISONE ACETATE [Concomitant]
  7. ADCAL (CARBAZOCHROME) [Concomitant]

REACTIONS (2)
  - MYOCARDIAL INFARCTION [None]
  - MYOCARDIAL ISCHAEMIA [None]
